FAERS Safety Report 25846391 (Version 2)
Quarter: 2025Q4

REPORT INFORMATION
  Report Type: Spontaneous
  Country: US (occurrence: US)
  Receive Date: 20250925
  Receipt Date: 20251030
  Transmission Date: 20260117
  Serious: Yes (Hospitalization)
  Sender: MYLAN
  Company Number: US-MYLANLABS-2025M1080978

PATIENT
  Age: 59 Year
  Sex: Female

DRUGS (16)
  1. TAMOXIFEN [Suspect]
     Active Substance: TAMOXIFEN
     Indication: Hormone receptor positive breast cancer
     Dosage: UNK
  2. TAMOXIFEN [Suspect]
     Active Substance: TAMOXIFEN
     Indication: Hormone receptor positive breast cancer
  3. TAMOXIFEN [Suspect]
     Active Substance: TAMOXIFEN
     Indication: HER2 negative breast cancer
  4. TAMOXIFEN [Suspect]
     Active Substance: TAMOXIFEN
     Indication: Invasive lobular breast carcinoma
  5. PACLITAXEL [Suspect]
     Active Substance: PACLITAXEL
     Indication: Hormone receptor positive breast cancer
     Dosage: UNK, QW
  6. PACLITAXEL [Suspect]
     Active Substance: PACLITAXEL
     Indication: Hormone receptor positive breast cancer
  7. PACLITAXEL [Suspect]
     Active Substance: PACLITAXEL
     Indication: HER2 negative breast cancer
  8. PACLITAXEL [Suspect]
     Active Substance: PACLITAXEL
     Indication: Invasive lobular breast carcinoma
  9. ANASTROZOLE [Suspect]
     Active Substance: ANASTROZOLE
     Indication: Hormone receptor positive breast cancer
     Dosage: UNK
  10. ANASTROZOLE [Suspect]
     Active Substance: ANASTROZOLE
     Indication: Hormone receptor positive breast cancer
  11. ANASTROZOLE [Suspect]
     Active Substance: ANASTROZOLE
     Indication: HER2 negative breast cancer
  12. ANASTROZOLE [Suspect]
     Active Substance: ANASTROZOLE
     Indication: Invasive lobular breast carcinoma
  13. METHOTREXATE [Concomitant]
     Active Substance: METHOTREXATE
     Indication: Hormone receptor positive breast cancer
     Dosage: UNK
  14. METHOTREXATE [Concomitant]
     Active Substance: METHOTREXATE
     Indication: Hormone receptor positive breast cancer
  15. METHOTREXATE [Concomitant]
     Active Substance: METHOTREXATE
     Indication: HER2 negative breast cancer
  16. METHOTREXATE [Concomitant]
     Active Substance: METHOTREXATE
     Indication: Invasive lobular breast carcinoma

REACTIONS (2)
  - Drug ineffective [Unknown]
  - Toxicity to various agents [Unknown]
